FAERS Safety Report 20988109 (Version 3)
Quarter: 2022Q3

REPORT INFORMATION
  Report Type: Spontaneous
  Country: US (occurrence: US)
  Receive Date: 20220621
  Receipt Date: 20220811
  Transmission Date: 20221027
  Serious: Yes (Hospitalization)
  Sender: FDA-Public Use
  Company Number: US-PFIZER INC-202200851220

PATIENT
  Age: 78 Year
  Sex: Male
  Weight: 74.83 kg

DRUGS (1)
  1. PAXLOVID [Suspect]
     Active Substance: NIRMATRELVIR\RITONAVIR
     Indication: COVID-19 treatment
     Dosage: 2 DF, 2X/DAY
     Dates: start: 20220603, end: 20220607

REACTIONS (4)
  - Therapeutic product effect incomplete [Recovered/Resolved]
  - Nasopharyngitis [Recovered/Resolved]
  - Product prescribing error [Unknown]
  - Incorrect dose administered [Unknown]

NARRATIVE: CASE EVENT DATE: 20220601
